FAERS Safety Report 4541622-7 (Version None)
Quarter: 2004Q4

REPORT INFORMATION
  Report Type: 
  Country: None (occurrence: None)
  Receive Date: 20041227
  Receipt Date: 20041213
  Transmission Date: 20050328
  Serious: Yes (Hospitalization)
  Sender: FDA-Public Use
  Company Number: 2004114982

PATIENT
  Age: 66 Year
  Sex: Male

DRUGS (4)
  1. DOXORUBICIN HCL [Suspect]
     Indication: LYMPHOMA
     Dosage: 50 MG/M*2 (50MG/M*2, 1 D), INTRAVENOUS
     Route: 042
     Dates: start: 20040401
  2. CYCLOPHOSPHAMIDE [Suspect]
     Indication: LYMPHOMA
     Dosage: 750 MG/M*2 (750 MG/M*2, 1 D), INTRAVENOUS
     Route: 042
     Dates: start: 20040401
  3. VINCRISTINE SULFATE [Suspect]
     Indication: LYMPHOMA
     Dosage: 1.4 MG/M*2 (1.4 MG/M*2, 1 D), INTRAVENOUS
     Route: 042
     Dates: start: 20040401
  4. PREDNISOLONE [Concomitant]

REACTIONS (1)
  - JAUNDICE [None]
